FAERS Safety Report 14278482 (Version 1)
Quarter: 2017Q4

REPORT INFORMATION
  Report Type: Spontaneous
  Country: CA (occurrence: CA)
  Receive Date: 20171212
  Receipt Date: 20171212
  Transmission Date: 20180321
  Serious: Yes (Death, Life-Threatening)
  Sender: FDA-Public Use
  Company Number: CA-PURDUE PHARMA-CAN-2017-0008159

PATIENT
  Age: 56 Year
  Sex: Male

DRUGS (5)
  1. SANDOSTATIN [Suspect]
     Active Substance: OCTREOTIDE ACETATE
     Indication: NEUROENDOCRINE CARCINOMA
     Dosage: 30 MG, MONTHLY
     Route: 030
  2. SANDOSTATIN [Suspect]
     Active Substance: OCTREOTIDE ACETATE
     Dosage: 60 MG, MONTHLY
     Route: 030
  3. MORPHINE SULFATE. [Suspect]
     Active Substance: MORPHINE SULFATE
     Indication: PAIN
     Dosage: UNK
     Route: 048
  4. SANDOSTATIN [Suspect]
     Active Substance: OCTREOTIDE ACETATE
     Indication: NEUROENDOCRINE TUMOUR
     Dosage: 100 MCG, TOTAL
     Route: 058
  5. FRAGMIN [Concomitant]
     Active Substance: DALTEPARIN SODIUM
     Indication: PRODUCT USED FOR UNKNOWN INDICATION
     Dosage: UNK
     Route: 065

REACTIONS (32)
  - Death [Fatal]
  - Dyspnoea [Fatal]
  - Appetite disorder [Fatal]
  - Joint swelling [Fatal]
  - Chest pain [Fatal]
  - Chromaturia [Fatal]
  - Blood pressure increased [Fatal]
  - Malaise [Fatal]
  - Cerebral disorder [Fatal]
  - Productive cough [Fatal]
  - Weight decreased [Fatal]
  - Sedation [Fatal]
  - Loss of consciousness [Fatal]
  - Tremor [Fatal]
  - Peripheral swelling [Fatal]
  - General physical health deterioration [Fatal]
  - Injection site pain [Fatal]
  - Sleep disorder [Fatal]
  - Constipation [Fatal]
  - Fatigue [Fatal]
  - Hyperhidrosis [Fatal]
  - Vomiting [Fatal]
  - Emotional disorder [Fatal]
  - Feeding disorder [Fatal]
  - Pain in extremity [Fatal]
  - Neuralgia [Fatal]
  - Abdominal distension [Fatal]
  - Swelling [Fatal]
  - Asthenia [Fatal]
  - Gait disturbance [Fatal]
  - Back pain [Fatal]
  - Nausea [Fatal]
